FAERS Safety Report 7348099-7 (Version None)
Quarter: 2011Q1

REPORT INFORMATION
  Report Type: 
  Country: None (occurrence: None)
  Receive Date: 20110302
  Receipt Date: 20090420
  Transmission Date: 20110831
  Serious: Yes (Other)
  Sender: FDA-Public Use
  Company Number: UK-2009-00137

PATIENT
  Age: 85 Year
  Sex: Male
  Weight: 70 kg

DRUGS (11)
  1. DIPYRIDAMOLE [Concomitant]
  2. OMEPRAZOLE [Concomitant]
  3. SIMVASTATIN [Suspect]
     Indication: CEREBRAL ISCHAEMIA
     Dates: start: 20090310, end: 20090407
  4. CALCIUM LACTATE, CALCIUM PHOSPHATE, ERGOCALCIFEROL (CALCIUM AND VITAMI [Concomitant]
  5. LORATADINE (UNKNOWN) [Concomitant]
  6. CLOBETASONE (CLOBETASONE HUTYRATE)(UNKNOWN) [Concomitant]
  7. DOCUSATE (DOCUSATE SODIUM)(UNKNOWN) [Concomitant]
  8. PLANTAGO (ISPAGHULA HUSK)(UNKNOWN) [Concomitant]
  9. PARRAFFINS (PARAFFIN LIQUID)(UNKNOWN) [Concomitant]
  10. HYDROCORTISONE (UNKNOWN) [Concomitant]
  11. ISOPROPYL MYRISTATE (UNKNOWN) [Concomitant]

REACTIONS (3)
  - GOUT [None]
  - ERYTHEMA MULTIFORME [None]
  - RASH GENERALISED [None]
